FAERS Safety Report 14100365 (Version 1)
Quarter: 2017Q4

REPORT INFORMATION
  Report Type: Spontaneous
  Country: US (occurrence: US)
  Receive Date: 20171017
  Receipt Date: 20171017
  Transmission Date: 20180321
  Serious: Yes (Death, Congenital Anomaly)
  Sender: FDA-Public Use
  Company Number: US-ABBVIE-17P-163-2132655-00

PATIENT

DRUGS (3)
  1. VALPROIC ACID. [Suspect]
     Active Substance: VALPROIC ACID
     Indication: MATERNAL EXPOSURE TIMING UNSPECIFIED
     Route: 064
  2. DIPHENYLHYDANTOIN [Suspect]
     Active Substance: PHENYTOIN
     Indication: MATERNAL EXPOSURE TIMING UNSPECIFIED
     Route: 064
  3. PHENOBARBITAL. [Suspect]
     Active Substance: PHENOBARBITAL
     Indication: MATERNAL EXPOSURE TIMING UNSPECIFIED
     Route: 064

REACTIONS (12)
  - Foetal anticonvulsant syndrome [Fatal]
  - Anomaly of external ear congenital [Fatal]
  - Cleft lip and palate [Fatal]
  - Clinodactyly [Fatal]
  - Developmental delay [Fatal]
  - Congenital cardiovascular anomaly [Fatal]
  - Congenital nose malformation [Fatal]
  - Cardiac murmur [Fatal]
  - Arachnodactyly [Fatal]
  - Growth retardation [Fatal]
  - Limb malformation [Fatal]
  - Foetal exposure during pregnancy [Unknown]
